FAERS Safety Report 25150537 (Version 1)
Quarter: 2025Q2

REPORT INFORMATION
  Report Type: Report from Study
  Country: DE (occurrence: DE)
  Receive Date: 20250402
  Receipt Date: 20250402
  Transmission Date: 20250716
  Serious: Yes (Other)
  Sender: BAYER
  Company Number: DE-BAYER-2025A043356

PATIENT
  Sex: Male

DRUGS (3)
  1. IOPROMIDE [Suspect]
     Active Substance: IOPROMIDE
  2. ASPIRIN [Suspect]
     Active Substance: ASPIRIN
  3. CLOPIDOGREL [Suspect]
     Active Substance: CLOPIDOGREL BISULFATE

REACTIONS (2)
  - Contrast encephalopathy [Recovered/Resolved]
  - Haemorrhage intracranial [None]
